FAERS Safety Report 8943704 (Version 1)
Quarter: 2012Q4

REPORT INFORMATION
  Report Type: 
  Country: IT (occurrence: IT)
  Receive Date: 20121203
  Receipt Date: 20121203
  Transmission Date: 20130627
  Serious: Yes (Life-Threatening)
  Sender: FDA-Public Use
  Company Number: IT-TEVA-372985ISR

PATIENT
  Age: 59 Year
  Sex: Female

DRUGS (3)
  1. CARBOPLATIN [Suspect]
     Indication: OVARIAN CANCER
     Dosage: 300 Milligram Daily;
     Route: 042
     Dates: start: 20121108, end: 20121108
  2. SOLDESAM [Concomitant]
  3. LIMICAN [Concomitant]

REACTIONS (7)
  - Throat tightness [Recovered/Resolved]
  - Flushing [Recovered/Resolved]
  - Nausea [Recovered/Resolved]
  - Abdominal pain [Recovered/Resolved]
  - Chills [Recovered/Resolved]
  - Drug hypersensitivity [Recovered/Resolved]
  - Feeling cold [Recovered/Resolved]
